FAERS Safety Report 8377764-8 (Version None)
Quarter: 2012Q2

REPORT INFORMATION
  Report Type: 
  Country: None (occurrence: None)
  Receive Date: 20120522
  Receipt Date: 20120517
  Transmission Date: 20120825
  Serious: Yes (Hospitalization)
  Sender: FDA-Public Use
  Company Number: AU-JNJFOC-20100900697

PATIENT
  Sex: Male
  Weight: 59 kg

DRUGS (20)
  1. ACETAMINOPHEN [Concomitant]
     Indication: PROPHYLAXIS
     Route: 048
     Dates: start: 20100708, end: 20100826
  2. FLUOXETINE HCL [Concomitant]
     Indication: DEPRESSION
     Route: 048
     Dates: start: 19900101
  3. FUROSEMIDE [Concomitant]
     Indication: MYOCARDIAL ISCHAEMIA
     Route: 048
     Dates: start: 20080101, end: 20100831
  4. NEXIUM [Concomitant]
     Indication: GASTROOESOPHAGEAL REFLUX DISEASE
     Route: 048
     Dates: start: 20080101
  5. GOLIMUMAB [Suspect]
     Route: 042
     Dates: start: 20100708
  6. ACETAMINOPHEN [Concomitant]
     Route: 048
     Dates: start: 20100827
  7. MONODUR [Concomitant]
     Indication: MYOCARDIAL ISCHAEMIA
     Route: 048
     Dates: start: 20010101
  8. SIMVASTATIN [Concomitant]
     Indication: HYPERCHOLESTEROLAEMIA
     Route: 048
     Dates: start: 20000101
  9. FUROSEMIDE [Concomitant]
     Indication: FLUID RETENTION
     Route: 048
     Dates: start: 20080101, end: 20100831
  10. METHOTREXATE [Suspect]
     Indication: RHEUMATOID ARTHRITIS
  11. ACETAMINOPHEN [Concomitant]
     Indication: ARTHRALGIA
     Route: 048
     Dates: start: 20100708, end: 20100826
  12. PANAMAX [Concomitant]
     Indication: ARTHRALGIA
     Route: 048
     Dates: start: 19750101, end: 20100826
  13. TEMAZEPAM [Concomitant]
     Indication: INSOMNIA
     Route: 048
  14. FOLIC ACID [Concomitant]
     Indication: PROPHYLAXIS
     Route: 048
     Dates: start: 20091001
  15. DILTIAZEM [Concomitant]
     Indication: MYOCARDIAL ISCHAEMIA
     Route: 048
     Dates: start: 20010101, end: 20100902
  16. ROXITHROMYCIN [Concomitant]
     Route: 048
     Dates: start: 20100806, end: 20100810
  17. GOLIMUMAB [Suspect]
     Indication: RHEUMATOID ARTHRITIS
     Route: 042
     Dates: start: 20100806
  18. FEXOFENADINE HCL [Concomitant]
     Indication: PROPHYLAXIS
     Route: 048
     Dates: start: 20100708, end: 20100826
  19. ACETAMINOPHEN [Concomitant]
     Route: 048
     Dates: start: 20100827
  20. ASPIRIN [Concomitant]
     Indication: CARDIOVASCULAR EVENT PROPHYLAXIS
     Route: 048

REACTIONS (1)
  - INTERSTITIAL LUNG DISEASE [None]
